FAERS Safety Report 5080877-X (Version None)
Quarter: 2006Q3

REPORT INFORMATION
  Report Type: 
  Country: None (occurrence: None)
  Receive Date: 20060811
  Receipt Date: 20060801
  Transmission Date: 20061208
  Serious: Yes (Other)
  Sender: FDA-Public Use
  Company Number: 2006094963

PATIENT
  Age: 23 Year
  Sex: Female

DRUGS (1)
  1. AZULFIDINE [Suspect]
     Indication: DRUG USE FOR UNKNOWN INDICATION
     Dosage: 1 GRAM (500 MG, 2 IN 1 D), ORAL  LATE 2003
     Route: 048
     Dates: end: 20060505

REACTIONS (10)
  - ALANINE AMINOTRANSFERASE INCREASED [None]
  - ASPARTATE AMINOTRANSFERASE INCREASED [None]
  - EYE INFLAMMATION [None]
  - HERPES VIRUS INFECTION [None]
  - JAUNDICE CHOLESTATIC [None]
  - NAUSEA [None]
  - PRURITUS [None]
  - SKIN DISCOLOURATION [None]
  - STOMATITIS [None]
  - WEIGHT DECREASED [None]
